FAERS Safety Report 12159623 (Version 2)
Quarter: 2016Q1

REPORT INFORMATION
  Report Type: Spontaneous
  Country: ZA (occurrence: ZA)
  Receive Date: 20160308
  Receipt Date: 20160324
  Transmission Date: 20160526
  Serious: Yes (Other)
  Sender: FDA-Public Use
  Company Number: ZA-GLAXOSMITHKLINE-ZA2016GSK032022

PATIENT
  Age: 30 Year
  Sex: Female

DRUGS (1)
  1. LAMICTIN [Suspect]
     Active Substance: LAMOTRIGINE
     Indication: EPILEPSY
     Dosage: 200 MG, UNK

REACTIONS (8)
  - Headache [Unknown]
  - Burning sensation [Unknown]
  - Nausea [Unknown]
  - Erythema [Unknown]
  - Cerebral disorder [Unknown]
  - Seizure like phenomena [Unknown]
  - Dizziness [Unknown]
  - Paraesthesia [Unknown]

NARRATIVE: CASE EVENT DATE: 201602
